FAERS Safety Report 6757549-6 (Version None)
Quarter: 2010Q2

REPORT INFORMATION
  Report Type: 
  Country: None (occurrence: None)
  Receive Date: 20100607
  Receipt Date: 20100527
  Transmission Date: 20101027
  Serious: Yes (Other)
  Sender: FDA-Public Use
  Company Number: 2007BI024640

PATIENT
  Age: 22 Year
  Sex: Female

DRUGS (3)
  1. AVONEX [Suspect]
     Indication: MULTIPLE SCLEROSIS
     Route: 030
     Dates: start: 20060526, end: 20071011
  2. AVONEX [Suspect]
     Route: 030
     Dates: start: 20080701
  3. ALPRAZOLAM [Concomitant]
     Indication: NERVOUSNESS

REACTIONS (1)
  - ABORTION SPONTANEOUS [None]
